FAERS Safety Report 13257592 (Version 1)
Quarter: 2017Q1

REPORT INFORMATION
  Report Type: Spontaneous
  Country: GB (occurrence: GB)
  Receive Date: 20170221
  Receipt Date: 20170221
  Transmission Date: 20170428
  Serious: Yes (Other)
  Sender: FDA-Public Use
  Company Number: GB-SIGMAPHARM LABORATORIES, LLC-2017SIG00006

PATIENT
  Age: 58 Year
  Sex: Male

DRUGS (1)
  1. ACITRETIN. [Suspect]
     Active Substance: ACITRETIN
     Indication: PSORIASIS
     Dosage: 20 MG, 1X/DAY
     Route: 048

REACTIONS (1)
  - VIth nerve paralysis [Recovered/Resolved]
